FAERS Safety Report 21898591 (Version 1)
Quarter: 2023Q1

REPORT INFORMATION
  Report Type: Spontaneous
  Country: US (occurrence: None)
  Receive Date: 20230121
  Receipt Date: 20230121
  Transmission Date: 20230418
  Serious: Yes (Other)
  Sender: FDA-Public Use
  Company Number: None

PATIENT
  Age: 78 Year
  Sex: Female
  Weight: 56.25 kg

DRUGS (1)
  1. MAVYRET [Suspect]
     Active Substance: GLECAPREVIR\PIBRENTASVIR
     Indication: Hepatitis C
     Dosage: FREQUENCY : DAILY;?
     Route: 048
     Dates: start: 20230113, end: 20230116

REACTIONS (5)
  - Pruritus [None]
  - Sleep disorder [None]
  - Pruritus allergic [None]
  - Drug hypersensitivity [None]
  - Drug intolerance [None]

NARRATIVE: CASE EVENT DATE: 20230116
